FAERS Safety Report 4977835-X (Version None)
Quarter: 2006Q2

REPORT INFORMATION
  Report Type: 
  Country: None (occurrence: None)
  Receive Date: 20060417
  Receipt Date: 20060401
  Transmission Date: 20061013
  Serious: Yes (Other)
  Sender: FDA-Public Use
  Company Number: 2006046508

PATIENT
  Sex: Male
  Weight: 116.5744 kg

DRUGS (6)
  1. VIAGRA [Suspect]
     Indication: ERECTILE DYSFUNCTION
     Dosage: 25 MG
     Dates: end: 20051001
  2. VITAMIN C (VITAMIN C) [Concomitant]
  3. METFORMIN [Concomitant]
  4. HYDRAZINE (HYDRAZINE) [Concomitant]
  5. HYTRIN [Concomitant]
  6. TARKA [Concomitant]

REACTIONS (3)
  - CYANOPSIA [None]
  - DRUG EFFECT DECREASED [None]
  - DRUG INEFFECTIVE [None]
